FAERS Safety Report 19436764 (Version 1)
Quarter: 2021Q2

REPORT INFORMATION
  Report Type: Spontaneous
  Country: US (occurrence: US)
  Receive Date: 20210618
  Receipt Date: 20210618
  Transmission Date: 20210717
  Serious: Yes (Hospitalization)
  Sender: FDA-Public Use
  Company Number: US-BAUSCH-BL-2021-020147

PATIENT
  Age: 90 Year
  Sex: Female

DRUGS (5)
  1. BRIMONIDINE (SANDOZ) [Suspect]
     Active Substance: BRIMONIDINE TARTRATE
     Indication: INTRAOCULAR PRESSURE TEST ABNORMAL
     Route: 065
     Dates: end: 2021
  2. DORZOLAMIDE HYDROCHLORIDE. [Suspect]
     Active Substance: DORZOLAMIDE HYDROCHLORIDE
     Indication: INTRAOCULAR PRESSURE TEST ABNORMAL
     Route: 047
     Dates: start: 20210324, end: 2021
  3. BRIMONIDINE (SANDOZ) [Suspect]
     Active Substance: BRIMONIDINE TARTRATE
     Route: 065
     Dates: start: 2021
  4. LATANOPROST (SANDOZ) [Suspect]
     Active Substance: LATANOPROST
     Indication: INTRAOCULAR PRESSURE TEST ABNORMAL
     Route: 065
  5. DORZOLAMIDE HYDROCHLORIDE. [Suspect]
     Active Substance: DORZOLAMIDE HYDROCHLORIDE
     Route: 047
     Dates: start: 2021

REACTIONS (4)
  - Tremor [Unknown]
  - Blood pressure fluctuation [Unknown]
  - Circulatory collapse [Unknown]
  - Visual impairment [Unknown]

NARRATIVE: CASE EVENT DATE: 2021
